FAERS Safety Report 5428122-7 (Version None)
Quarter: 2007Q3

REPORT INFORMATION
  Report Type: 
  Country: None (occurrence: None)
  Receive Date: 20070828
  Receipt Date: 20070824
  Transmission Date: 20080115
  Serious: No
  Sender: FDA-Public Use
  Company Number: US-BOEHRINGER INGELHEIM PHARMACEUTICALS, INC.-2007-BP-17421BP

PATIENT
  Sex: Female
  Weight: 84 kg

DRUGS (7)
  1. COMBIVENT [Suspect]
     Indication: DYSPNOEA
     Route: 055
  2. DUONEB [Suspect]
     Indication: DYSPNOEA
     Dates: start: 20070501, end: 20070505
  3. LASIX [Concomitant]
  4. K-DUR 10 [Concomitant]
  5. ZOCOR [Concomitant]
  6. PRILOSEC [Concomitant]
  7. OTHER MEDICATIONS [Concomitant]

REACTIONS (4)
  - HYPOAESTHESIA [None]
  - HYPOAESTHESIA ORAL [None]
  - PARAESTHESIA [None]
  - PARAESTHESIA ORAL [None]
